FAERS Safety Report 23520777 (Version 1)
Quarter: 2024Q1

REPORT INFORMATION
  Report Type: Spontaneous
  Country: US (occurrence: US)
  Receive Date: 20240214
  Receipt Date: 20240214
  Transmission Date: 20240410
  Serious: No
  Sender: FDA-Public Use
  Company Number: US-BRISTOL-MYERS SQUIBB COMPANY-2024-023268

PATIENT
  Age: 59 Year
  Sex: Female
  Weight: 83.46 kg

DRUGS (3)
  1. ZEPOSIA [Suspect]
     Active Substance: OZANIMOD HYDROCHLORIDE
     Indication: Colitis ulcerative
     Route: 048
     Dates: start: 20240129
  2. LIALDA [Concomitant]
     Active Substance: MESALAMINE
     Indication: Product used for unknown indication
  3. MESALAMINE [Concomitant]
     Active Substance: MESALAMINE
     Indication: Product used for unknown indication

REACTIONS (2)
  - Asthenia [Unknown]
  - Pollakiuria [Unknown]
